FAERS Safety Report 5986801-7 (Version None)
Quarter: 2008Q4

REPORT INFORMATION
  Report Type: 
  Country: None (occurrence: None)
  Receive Date: 20081209
  Receipt Date: 20080409
  Transmission Date: 20090506
  Serious: No
  Sender: FDA-Public Use
  Company Number: US-AMGEN-KDL273789

PATIENT
  Sex: Male

DRUGS (3)
  1. ENBREL [Suspect]
     Indication: RHEUMATOID ARTHRITIS
     Route: 058
     Dates: start: 20070124
  2. SULFASALAZINE [Concomitant]
     Route: 048
     Dates: start: 20000101
  3. ANTIHYPERTENSIVES [Concomitant]

REACTIONS (1)
  - JOINT SWELLING [None]
